FAERS Safety Report 9998995 (Version 2)
Quarter: 2014Q3

REPORT INFORMATION
  Report Type: Spontaneous
  Country: US (occurrence: None)
  Receive Date: 20140310
  Receipt Date: 20140912
  Transmission Date: 20150326
  Serious: Yes (Life-Threatening, Hospitalization, Other)
  Sender: FDA-Public Use
  Company Number: ADR-2014-00367

PATIENT
  Age: 29 Year
  Sex: Male

DRUGS (2)
  1. BACLOFEN. [Suspect]
     Active Substance: BACLOFEN
     Route: 048
  2. LIORESAL [Suspect]
     Active Substance: BACLOFEN
     Indication: MUSCLE SPASTICITY

REACTIONS (9)
  - Victim of crime [None]
  - Performance status decreased [None]
  - Device issue [None]
  - Sepsis [None]
  - Drug ineffective [None]
  - Coma [None]
  - Muscle spasticity [None]
  - Implant site infection [None]
  - Osteomyelitis [None]
